FAERS Safety Report 7862755-3 (Version None)
Quarter: 2011Q4

REPORT INFORMATION
  Report Type: 
  Country: None (occurrence: None)
  Receive Date: 20111027
  Receipt Date: 20101112
  Transmission Date: 20120403
  Serious: Yes (Hospitalization)
  Sender: FDA-Public Use
  Company Number: US-AMGEN-USASP2010005031

PATIENT
  Age: 48 Year
  Sex: Male

DRUGS (3)
  1. ENBREL [Suspect]
     Indication: PSORIASIS
     Dates: start: 20100101, end: 20100101
  2. LAMISIL                            /00992601/ [Concomitant]
     Dates: start: 20100101, end: 20100101
  3. ENBREL [Suspect]
     Dates: start: 20100101, end: 20100101

REACTIONS (1)
  - THROMBOCYTOPENIA [None]
